FAERS Safety Report 19072773 (Version 1)
Quarter: 2021Q1

REPORT INFORMATION
  Report Type: Spontaneous
  Country: US (occurrence: US)
  Receive Date: 20210330
  Receipt Date: 20210330
  Transmission Date: 20210420
  Serious: No
  Sender: FDA-Public Use
  Company Number: US-SA-2021SA104208

PATIENT
  Age: 24 Year
  Sex: Female

DRUGS (2)
  1. DUPIXENT [Suspect]
     Active Substance: DUPILUMAB
     Indication: DERMATITIS ATOPIC
     Dosage: 2 SYR SUBQ ON DAY 1, THEN 1 SYR QOW STARTING DAY 15
     Route: 058
     Dates: start: 20210311
  2. DUPIXENT [Suspect]
     Active Substance: DUPILUMAB
     Dosage: 1 SYR QOW STARTING DAY 15
     Route: 058
     Dates: start: 202103

REACTIONS (2)
  - Dermatitis atopic [Not Recovered/Not Resolved]
  - Insomnia [Not Recovered/Not Resolved]

NARRATIVE: CASE EVENT DATE: 202103
